FAERS Safety Report 5922242-6 (Version None)
Quarter: 2008Q4

REPORT INFORMATION
  Report Type: 
  Country: None (occurrence: None)
  Receive Date: 20081017
  Receipt Date: 20081003
  Transmission Date: 20090506
  Serious: Yes (Life-Threatening)
  Sender: FDA-Public Use
  Company Number: JP-GENENTECH-265674

PATIENT
  Sex: Male

DRUGS (16)
  1. AVASTIN [Suspect]
     Indication: RECTAL CANCER RECURRENT
     Dosage: 300 MG, QD
     Route: 041
     Dates: start: 20080404, end: 20080709
  2. OXALIPLATIN [Suspect]
     Indication: RECTAL CANCER
     Dosage: 85 MG/M2, QD
     Route: 041
     Dates: start: 20080404, end: 20080511
  3. FLUOROURACIL [Suspect]
     Indication: RECTAL CANCER
     Dosage: 400 MG/M2, QD
     Route: 041
     Dates: start: 20080404, end: 20080710
  4. LEUCOVORIN CALCIUM [Suspect]
     Indication: RECTAL CANCER
     Dosage: 100 MG/M2, QD
     Route: 041
     Dates: start: 20080404, end: 20080709
  5. IRINOTECAN HYDROCHLORIDE [Suspect]
     Indication: RECTAL CANCER
     Dosage: 150 MG/M2, UNK
     Route: 041
     Dates: start: 20080526, end: 20080709
  6. OXYCONTIN [Concomitant]
     Indication: DRUG USE FOR UNKNOWN INDICATION
  7. OXYNORM [Concomitant]
     Indication: DRUG USE FOR UNKNOWN INDICATION
  8. VOLTAREN [Concomitant]
     Indication: DRUG USE FOR UNKNOWN INDICATION
  9. SELBEX [Concomitant]
     Indication: DRUG USE FOR UNKNOWN INDICATION
  10. FERROMIA [Concomitant]
     Indication: DRUG USE FOR UNKNOWN INDICATION
  11. GABAPENTIN [Concomitant]
     Indication: DRUG USE FOR UNKNOWN INDICATION
  12. DEPAKENE [Concomitant]
     Indication: DRUG USE FOR UNKNOWN INDICATION
  13. MAGMITT [Concomitant]
     Indication: DRUG USE FOR UNKNOWN INDICATION
  14. CYTOTEC [Concomitant]
     Indication: DRUG USE FOR UNKNOWN INDICATION
  15. KYTRIL [Concomitant]
     Indication: DRUG USE FOR UNKNOWN INDICATION
     Dosage: UNK
     Dates: start: 20080404
  16. DEXAMETHASONE [Concomitant]
     Indication: DRUG USE FOR UNKNOWN INDICATION
     Dosage: UNK
     Dates: start: 20080404

REACTIONS (2)
  - NECROTISING FASCIITIS [None]
  - SEPSIS [None]
